FAERS Safety Report 9764980 (Version 1)
Quarter: 2013Q4

REPORT INFORMATION
  Report Type: Spontaneous
  Country: US (occurrence: US)
  Receive Date: 20131217
  Receipt Date: 20131217
  Transmission Date: 20140711
  Serious: No
  Sender: FDA-Public Use
  Company Number: US-BIOGENIDEC-2013BI114405

PATIENT
  Sex: Female

DRUGS (16)
  1. TECFIDERA [Suspect]
     Indication: MULTIPLE SCLEROSIS
     Route: 048
     Dates: start: 20130830, end: 20130920
  2. TECFIDERA [Suspect]
     Indication: MULTIPLE SCLEROSIS
     Route: 048
     Dates: start: 20131023
  3. VITAMIN B12 [Concomitant]
  4. VITAMIN C [Concomitant]
  5. VITAMIN E [Concomitant]
  6. SENNA [Concomitant]
  7. CRANBERRY [Concomitant]
  8. CENTRUM [Concomitant]
  9. CALTRATE [Concomitant]
  10. FLAXSEED [Concomitant]
  11. FISH OIL [Concomitant]
  12. VITAMIN D [Concomitant]
  13. RISPERDAL [Concomitant]
  14. ZOLOFT [Concomitant]
  15. HCTZ [Concomitant]
  16. METOPROLOL [Concomitant]

REACTIONS (3)
  - Intentional drug misuse [Unknown]
  - Nausea [Recovered/Resolved]
  - Vomiting [Recovered/Resolved]
